FAERS Safety Report 6276034-1 (Version None)
Quarter: 2009Q3

REPORT INFORMATION
  Report Type: 
  Country: None (occurrence: None)
  Receive Date: 20090722
  Receipt Date: 20071121
  Transmission Date: 20100115
  Serious: Yes (Hospitalization)
  Sender: FDA-Public Use
  Company Number: US-ASTRAZENECA-2006UW22419

PATIENT
  Age: 996 Month
  Sex: Female
  Weight: 59.1 kg

DRUGS (27)
  1. SEROQUEL [Suspect]
     Indication: PANIC ATTACK
     Route: 048
     Dates: start: 19990101, end: 20050101
  2. SEROQUEL [Suspect]
     Dosage: 25-100 MG
     Route: 048
     Dates: start: 20000509, end: 20050112
  3. CLOZARIL [Concomitant]
     Dates: start: 20020501
  4. HALDOL [Concomitant]
     Dates: start: 20020501
  5. PAXIL [Concomitant]
     Dates: start: 20020501
  6. PAXIL [Concomitant]
     Dosage: 10-40 MG
     Route: 048
  7. DEPAKOTE [Concomitant]
     Dosage: 125-850 MG
     Route: 048
     Dates: start: 20020426
  8. SYNTHROID [Concomitant]
     Indication: HYPERTHYROIDISM
     Route: 048
  9. EXELON [Concomitant]
     Dosage: 1.5-3 MG
     Route: 048
     Dates: end: 20021221
  10. ISOSORBIDE MONONITRATE [Concomitant]
     Route: 048
  11. ZYPREXA [Concomitant]
     Indication: BIPOLAR I DISORDER
     Dosage: 5-10 MG
     Route: 048
     Dates: end: 20050112
  12. ZYPREXA [Concomitant]
     Indication: PSYCHOTIC DISORDER
     Dosage: 5-10 MG
     Route: 048
     Dates: end: 20050112
  13. ZYPREXA [Concomitant]
     Indication: DEMENTIA
     Dosage: 5-10 MG
     Route: 048
     Dates: end: 20050112
  14. ZYPREXA [Concomitant]
     Indication: ABNORMAL BEHAVIOUR
     Dosage: 5-10 MG
     Route: 048
     Dates: end: 20050112
  15. EVISTA [Concomitant]
     Dates: start: 20020801
  16. REMERON [Concomitant]
  17. LASIX [Concomitant]
     Dosage: 40-80 MG
     Dates: start: 20020704
  18. KLONOPIN [Concomitant]
     Indication: PANIC ATTACK
     Dosage: 0.25-0.5 MG
  19. ALBUTEROL [Concomitant]
     Indication: DYSPNOEA
     Dosage: 0.083 PERCENT HHN QID TIMES ONE WEEK AND THEN PRN
     Dates: start: 20030610
  20. ALBUTEROL [Concomitant]
     Indication: WHEEZING
     Dosage: 0.083 PERCENT HHN QID TIMES ONE WEEK AND THEN PRN
     Dates: start: 20030610
  21. ATIVAN [Concomitant]
     Indication: AGITATION
  22. ATIVAN [Concomitant]
     Indication: ANXIETY
  23. LORTAB [Concomitant]
     Dosage: 5 MG ONE TABLET P.O. EVERY FOUR TO SIX HOURS P.R.N.
  24. PROAMATINE [Concomitant]
     Route: 048
  25. ENALAPRIL MALEATE [Concomitant]
     Indication: CARDIAC DISORDER
  26. DIPHENHYDRAMINE HCL [Concomitant]
  27. RITALIN [Concomitant]
     Dosage: 5-10 MG
     Route: 048
     Dates: start: 20020730

REACTIONS (5)
  - DEHYDRATION [None]
  - HYPERGLYCAEMIA [None]
  - OVERDOSE [None]
  - OXYGEN SATURATION DECREASED [None]
  - PNEUMONIA [None]
